FAERS Safety Report 6733578-3 (Version None)
Quarter: 2010Q2

REPORT INFORMATION
  Report Type: 
  Country: None (occurrence: None)
  Receive Date: 20100520
  Receipt Date: 20100310
  Transmission Date: 20101027
  Serious: Yes (Hospitalization)
  Sender: FDA-Public Use
  Company Number: US-SANOFI-AVENTIS-2010SA014303

PATIENT
  Sex: Male
  Weight: 80.2 kg

DRUGS (1)
  1. LOVENOX [Suspect]
     Route: 058
     Dates: start: 20091123, end: 20091124

REACTIONS (3)
  - CHEST PAIN [None]
  - DEEP VEIN THROMBOSIS [None]
  - NECK PAIN [None]
